FAERS Safety Report 25618720 (Version 1)
Quarter: 2025Q3

REPORT INFORMATION
  Report Type: Spontaneous
  Country: US (occurrence: None)
  Receive Date: 20250729
  Receipt Date: 20250729
  Transmission Date: 20251020
  Serious: Yes (Death)
  Sender: FDA-CTU
  Company Number: None

PATIENT
  Age: 78 Year
  Sex: Female

DRUGS (1)
  1. LENALIDOMIDE [Suspect]
     Active Substance: LENALIDOMIDE
     Indication: Plasma cell myeloma
     Dosage: 10MG QD ORAL
     Route: 048
     Dates: start: 20250708

REACTIONS (5)
  - Acute kidney injury [None]
  - Urinary retention [None]
  - Urinary tract infection [None]
  - Hypoxia [None]
  - Oliguria [None]

NARRATIVE: CASE EVENT DATE: 20250728
